FAERS Safety Report 17533586 (Version 1)
Quarter: 2020Q1

REPORT INFORMATION
  Report Type: Spontaneous
  Country: US (occurrence: US)
  Receive Date: 20200312
  Receipt Date: 20200312
  Transmission Date: 20200409
  Serious: Yes (Hospitalization)
  Sender: FDA-Public Use
  Company Number: None

PATIENT
  Age: 56 Year
  Sex: Female

DRUGS (2)
  1. HUMIRA [Suspect]
     Active Substance: ADALIMUMAB
     Indication: RHEUMATOID ARTHRITIS
     Dosage: ?          OTHER FREQUENCY:EVERY TWO WEEKS;?
     Route: 058
     Dates: start: 20160722
  2. VITAMIN D, SYMBICORT, IRON, PLAQUENIL [Concomitant]

REACTIONS (3)
  - Discomfort [None]
  - Lower limb fracture [None]
  - Therapy cessation [None]

NARRATIVE: CASE EVENT DATE: 20190716
